FAERS Safety Report 4410480-3 (Version None)
Quarter: 2004Q3

REPORT INFORMATION
  Report Type: 
  Country: None (occurrence: None)
  Receive Date: 20040729
  Receipt Date: 20040729
  Transmission Date: 20050211
  Serious: Yes (Hospitalization)
  Sender: FDA-Public Use
  Company Number: None

PATIENT
  Age: 63 Year
  Sex: Female
  Weight: 55.3388 kg

DRUGS (2)
  1. IMATINIB MESYLATE [Suspect]
     Indication: INTERSTITIAL LUNG DISEASE
     Dosage: 600 MG ONCE DAILY ORALLY
     Route: 048
     Dates: start: 20040112
  2. ZITHROMAX [Concomitant]

REACTIONS (6)
  - CONDITION AGGRAVATED [None]
  - DISEASE PROGRESSION [None]
  - DYSPNOEA [None]
  - INTERSTITIAL LUNG DISEASE [None]
  - MAMMOGRAM ABNORMAL [None]
  - SINUSITIS [None]
